FAERS Safety Report 10878521 (Version 1)
Quarter: 2015Q1

REPORT INFORMATION
  Report Type: Report from Study
  Country: US (occurrence: US)
  Receive Date: 20150302
  Receipt Date: 20150302
  Transmission Date: 20150721
  Serious: No
  Sender: FDA-Public Use
  Company Number: US-ABBVIE-14P-163-1214253-00

PATIENT
  Age: 48 Year
  Sex: Male
  Weight: 86.71 kg

DRUGS (9)
  1. ANDROGEL [Suspect]
     Active Substance: TESTOSTERONE
     Indication: BLOOD TESTOSTERONE DECREASED
     Dosage: TAKING IN AM
     Route: 061
     Dates: start: 2012
  2. SUBOXONE [Concomitant]
     Active Substance: BUPRENORPHINE HYDROCHLORIDE\NALOXONE HYDROCHLORIDE
     Indication: DRUG DEPENDENCE
     Dates: start: 2013
  3. CLONIDINE. [Concomitant]
     Active Substance: CLONIDINE
     Indication: HYPERTENSION
     Dates: start: 2013
  4. NICODERM CQ [Suspect]
     Active Substance: NICOTINE
     Dosage: PATCHES: STAGE 2 DOSE, UNKNOWN
     Route: 061
     Dates: start: 201403
  5. EPIDURALS [Concomitant]
     Indication: BACK DISORDER
     Dosage: NORMALLY 6 TIMES PER YEAR, BUT WITHIN LAST YEAR ONLY HAD 2 DONE
     Route: 008
  6. LORAZEPAM. [Concomitant]
     Active Substance: LORAZEPAM
     Indication: PRODUCT USED FOR UNKNOWN INDICATION
  7. NICODERM CQ [Suspect]
     Active Substance: NICOTINE
     Indication: SMOKING CESSATION THERAPY
     Dosage: PATCHES: STAGE 1 DOSE, UNKNOWN
     Route: 061
     Dates: start: 201403, end: 201403
  8. XANAX [Concomitant]
     Active Substance: ALPRAZOLAM
     Indication: PRODUCT USED FOR UNKNOWN INDICATION
  9. UNKNOWN SLEEPING MEDICATION [Concomitant]
     Indication: RESTLESS LEGS SYNDROME

REACTIONS (11)
  - Dizziness [Recovered/Resolved]
  - Pain in extremity [Recovered/Resolved]
  - Dyspepsia [Recovered/Resolved]
  - Dyspnoea [Recovering/Resolving]
  - Fall [Recovered/Resolved]
  - Anxiety [Not Recovered/Not Resolved]
  - Hypoaesthesia [Recovered/Resolved]
  - Apathy [Not Recovered/Not Resolved]
  - Chest pain [Recovered/Resolved]
  - Erection increased [Not Recovered/Not Resolved]
  - Therapeutic response unexpected [Not Recovered/Not Resolved]

NARRATIVE: CASE EVENT DATE: 201403
